FAERS Safety Report 22661384 (Version 1)
Quarter: 2023Q2

REPORT INFORMATION
  Report Type: Report from Study
  Country: US (occurrence: None)
  Receive Date: 20230630
  Receipt Date: 20230630
  Transmission Date: 20230721
  Serious: Yes (Other)
  Sender: FDA-Public Use
  Company Number: 2023A145251

PATIENT
  Age: 60 Year

DRUGS (3)
  1. BYDUREON [Suspect]
     Active Substance: EXENATIDE
     Route: 058
     Dates: start: 201502
  2. BYETTA [Suspect]
     Active Substance: EXENATIDE
     Route: 058
  3. SYMLIN [Suspect]
     Active Substance: PRAMLINTIDE ACETATE
     Route: 058

REACTIONS (16)
  - Road traffic accident [Unknown]
  - Ligament injury [Unknown]
  - Decreased activity [Unknown]
  - Burning sensation [Unknown]
  - Glycosylated haemoglobin increased [Unknown]
  - Blood glucose increased [Unknown]
  - Drug hypersensitivity [Unknown]
  - Blood glucose decreased [Unknown]
  - Pruritus [Unknown]
  - Allergy to plants [Unknown]
  - Allergy to metals [Unknown]
  - Allergy to arthropod sting [Unknown]
  - Blood glucose abnormal [Unknown]
  - Condition aggravated [Unknown]
  - Food allergy [Unknown]
  - Blood pressure abnormal [Unknown]

NARRATIVE: CASE EVENT DATE: 20120101
